FAERS Safety Report 9054936 (Version 2)
Quarter: 2013Q1

REPORT INFORMATION
  Report Type: Spontaneous
  Country: US (occurrence: US)
  Receive Date: 20130208
  Receipt Date: 20130305
  Transmission Date: 20140127
  Serious: No
  Sender: FDA-Public Use
  Company Number: PR-VERTEX PHARMACEUTICALS INC.-2013-001375

PATIENT
  Age: 41 None
  Sex: Male

DRUGS (8)
  1. INCIVEK [Suspect]
     Indication: HEPATITIS C
     Dosage: 750 MG, TID
     Route: 048
     Dates: start: 20130111, end: 20130204
  2. PEGASYS [Suspect]
     Indication: HEPATITIS C
     Dosage: 180 ?G, QW
     Route: 058
     Dates: start: 20130111, end: 20130204
  3. RIBAVIRIN [Suspect]
     Indication: HEPATITIS C
     Dosage: 600 MG, BID
     Route: 048
     Dates: start: 20130111, end: 20130204
  4. METFORMIN [Concomitant]
     Indication: DIABETES MELLITUS
  5. COZAAR [Concomitant]
     Indication: HYPERTENSION
  6. PRISTIQ [Concomitant]
  7. KLONOPIN [Concomitant]
  8. ABILIFY [Concomitant]

REACTIONS (4)
  - Blood glucose increased [Not Recovered/Not Resolved]
  - Rash erythematous [Recovered/Resolved]
  - Haemoglobin decreased [Not Recovered/Not Resolved]
  - Pruritus [Unknown]
